FAERS Safety Report 5955358-9 (Version None)
Quarter: 2008Q4

REPORT INFORMATION
  Report Type: 
  Country: None (occurrence: None)
  Receive Date: 20081031
  Receipt Date: 20080715
  Transmission Date: 20090506
  Serious: No
  Sender: FDA-Public Use
  Company Number: 2008PV036180

PATIENT
  Age: 47 Year
  Sex: Male

DRUGS (3)
  1. SYMLIN [Suspect]
     Indication: WEIGHT DECREASED
     Dosage: 15 MCG;BID;SC
     Route: 058
     Dates: start: 20070101, end: 20080501
  2. METFORMIN HCL [Concomitant]
  3. NOVOLOG [Concomitant]

REACTIONS (2)
  - FEELING ABNORMAL [None]
  - NAUSEA [None]
